FAERS Safety Report 4985606-3 (Version None)
Quarter: 2006Q2

REPORT INFORMATION
  Report Type: 
  Country: None (occurrence: None)
  Receive Date: 20060426
  Receipt Date: 20060426
  Transmission Date: 20061013
  Serious: No
  Sender: FDA-Public Use
  Company Number: None

PATIENT
  Sex: Female
  Weight: 61 kg

DRUGS (3)
  1. CYCLOPHOSPHAMIDE [Suspect]
     Indication: BREAST CANCER
     Dosage: 4000 MG
     Dates: start: 20000915, end: 20001121
  2. DOXORUBICIN HCL [Suspect]
     Dosage: 400 MG
     Dates: start: 20000915, end: 20001121
  3. NOLVADEX [Suspect]
     Dosage: 18740 MG
     Dates: start: 20011003, end: 20040427

REACTIONS (3)
  - CARDIOMYOPATHY [None]
  - DYSPNOEA [None]
  - EJECTION FRACTION DECREASED [None]
